FAERS Safety Report 5569649-7 (Version None)
Quarter: 2007Q4

REPORT INFORMATION
  Report Type: 
  Country: None (occurrence: None)
  Receive Date: 20071220
  Receipt Date: 20071217
  Transmission Date: 20080405
  Serious: Yes (Other)
  Sender: FDA-Public Use
  Company Number: A0699835A

PATIENT
  Age: 2 Year
  Sex: Male

DRUGS (1)
  1. ALBUTEROL [Suspect]
     Indication: RESPIRATORY DISORDER
     Route: 055

REACTIONS (4)
  - DYSPNOEA [None]
  - INHALATION THERAPY [None]
  - RESPIRATORY ARREST [None]
  - STATUS EPILEPTICUS [None]
